FAERS Safety Report 5573648-9 (Version None)
Quarter: 2007Q4

REPORT INFORMATION
  Report Type: 
  Country: None (occurrence: None)
  Receive Date: 20071226
  Receipt Date: 20071213
  Transmission Date: 20080405
  Serious: Yes (Life-Threatening, Hospitalization)
  Sender: FDA-Public Use
  Company Number: JP-AMGEN-US255897

PATIENT
  Sex: Female
  Weight: 55 kg

DRUGS (14)
  1. ENBREL [Suspect]
     Indication: RHEUMATOID ARTHRITIS
     Route: 058
     Dates: start: 20070515, end: 20070529
  2. ENBREL [Suspect]
     Dates: start: 20070601, end: 20070619
  3. ENBREL [Suspect]
     Dates: start: 20070626, end: 20070731
  4. ENBREL [Suspect]
     Dates: start: 20070806, end: 20070821
  5. ENBREL [Suspect]
     Dates: start: 20070828, end: 20071005
  6. ENBREL [Suspect]
     Dates: start: 20071012, end: 20071120
  7. ISCOTIN [Concomitant]
     Indication: ANTIBIOTIC PROPHYLAXIS
     Route: 048
     Dates: start: 20060929, end: 20070907
  8. HYALURONIDASE [Concomitant]
     Indication: RHEUMATOID ARTHRITIS
  9. ACTONEL [Concomitant]
     Indication: OSTEOPOROSIS
     Route: 048
     Dates: start: 20070106, end: 20071127
  10. DEXAMETHASONE SODIUM PHOSPHATE [Concomitant]
     Indication: RHEUMATOID ARTHRITIS
  11. METOLATE [Concomitant]
     Indication: RHEUMATOID ARTHRITIS
     Route: 048
     Dates: start: 20070907, end: 20070915
  12. METOLATE [Concomitant]
     Route: 048
     Dates: start: 20070921, end: 20071124
  13. PREDNISOLONE [Concomitant]
     Indication: RHEUMATOID ARTHRITIS
     Route: 048
     Dates: start: 20070313, end: 20070627
  14. PREDNISOLONE [Concomitant]
     Route: 048
     Dates: start: 20070628, end: 20071127

REACTIONS (4)
  - DISEASE PROGRESSION [None]
  - INFECTIVE SPONDYLITIS [None]
  - SEPSIS [None]
  - STAPHYLOCOCCAL INFECTION [None]
